FAERS Safety Report 8256710-1 (Version None)
Quarter: 2012Q2

REPORT INFORMATION
  Report Type: 
  Country: None (occurrence: None)
  Receive Date: 20120403
  Receipt Date: 20120330
  Transmission Date: 20120825
  Serious: No
  Sender: FDA-Public Use
  Company Number: US-PFIZER INC-2012081926

PATIENT
  Sex: Male
  Weight: 90.703 kg

DRUGS (3)
  1. EFFEXOR [Suspect]
     Indication: ANXIETY
  2. EFFEXOR [Suspect]
     Indication: DEPRESSION
     Dosage: 37.5 MG, 2X/DAY
     Route: 048
     Dates: start: 20120329
  3. LIPITOR [Concomitant]
     Indication: BLOOD CHOLESTEROL INCREASED
     Dosage: 20 MG, DAILY

REACTIONS (1)
  - HEADACHE [None]
